FAERS Safety Report 8882883 (Version 3)
Quarter: 2013Q4

REPORT INFORMATION
  Report Type: Spontaneous
  Country: US (occurrence: US)
  Receive Date: 20121103
  Receipt Date: 20131010
  Transmission Date: 20140711
  Serious: Yes (Hospitalization, Other)
  Sender: FDA-Public Use
  Company Number: US-009507513-1210USA010431

PATIENT
  Sex: Female
  Weight: 56.24 kg

DRUGS (6)
  1. FOSAMAX [Suspect]
     Indication: OSTEOPOROSIS
     Dosage: 70 MG, QW
     Route: 048
     Dates: start: 200303
  2. FOSAMAX PLUS D [Suspect]
     Indication: OSTEOPOROSIS
     Dosage: 70 MG, QW
     Route: 048
     Dates: start: 2005, end: 200810
  3. ALENDRONATE SODIUM [Suspect]
     Indication: OSTEOPOROSIS
     Dosage: 70 MG, QW
     Route: 048
     Dates: start: 200810, end: 201010
  4. VITAMINS (UNSPECIFIED) [Concomitant]
     Dosage: QD
     Dates: start: 1970
  5. CALCIUM (UNSPECIFIED) (+) VITAMIN D (UNSPECIFIED) [Concomitant]
     Dosage: 600MG-400IU, BID
     Dates: start: 1986
  6. IMITREX (SUMATRIPTAN) [Concomitant]
     Indication: MIGRAINE
     Dosage: 50 MG, 1/2 TABLET AS DIRECTED
     Route: 048
     Dates: start: 2003

REACTIONS (39)
  - Intramedullary rod insertion [Unknown]
  - Breast cancer [Unknown]
  - Mastectomy [Unknown]
  - Breast reconstruction [Unknown]
  - Parathyroidectomy [Unknown]
  - Basal cell carcinoma [Unknown]
  - Renal failure chronic [Unknown]
  - Femur fracture [Unknown]
  - Impaired healing [Unknown]
  - Foot fracture [Unknown]
  - Oral surgery [Unknown]
  - Hypoparathyroidism [Unknown]
  - Arthritis [Unknown]
  - Blood cholesterol increased [Unknown]
  - Hypertension [Unknown]
  - Wrist surgery [Unknown]
  - Device ineffective [Unknown]
  - Spinal compression fracture [Unknown]
  - Lumbar spinal stenosis [Unknown]
  - Spondylolisthesis [Unknown]
  - Intervertebral disc protrusion [Unknown]
  - Vertebral foraminal stenosis [Unknown]
  - Patella fracture [Unknown]
  - Hyperparathyroidism primary [Unknown]
  - Carpal tunnel syndrome [Unknown]
  - Haematoma [Unknown]
  - Wound infection bacterial [Unknown]
  - Haemorrhoids [Unknown]
  - Parathyroid tumour benign [Unknown]
  - Hand fracture [Unknown]
  - Blood creatine [Recovered/Resolved]
  - Osteoarthritis [Unknown]
  - Osteoarthritis [Unknown]
  - Drug ineffective [Unknown]
  - Abdominal discomfort [Unknown]
  - Arthralgia [Unknown]
  - Arthralgia [Unknown]
  - Pain in extremity [Unknown]
  - Back pain [Not Recovered/Not Resolved]
